FAERS Safety Report 20199506 (Version 3)
Quarter: 2022Q2

REPORT INFORMATION
  Report Type: Spontaneous
  Country: DE (occurrence: DE)
  Receive Date: 20211217
  Receipt Date: 20220608
  Transmission Date: 20220721
  Serious: Yes (Other)
  Sender: FDA-Public Use
  Company Number: DE-PFIZER INC-202101499811

PATIENT
  Age: 51 Year
  Sex: Male

DRUGS (19)
  1. PREDNISOLONE [Suspect]
     Active Substance: PREDNISOLONE
     Indication: T-cell lymphoma
     Dosage: UNK, CYCLIC (7 CYCLES)
  2. DOXORUBICIN [Suspect]
     Active Substance: DOXORUBICIN
     Indication: T-cell lymphoma
     Dosage: UNK, CYCLIC (7 CYCLES)
  3. DOXORUBICIN [Suspect]
     Active Substance: DOXORUBICIN
     Dosage: R-CHOEP-14 CHEMOTHERAPY
  4. DOXORUBICIN [Suspect]
     Active Substance: DOXORUBICIN
     Dosage: UNK, (UNK, CYCLIC (7 CYCLES))
  5. PREDNISONE [Suspect]
     Active Substance: PREDNISONE
     Indication: T-cell lymphoma
     Dosage: R-CHOEP-14 CHEMOTHERAPY
  6. PREDNISONE [Suspect]
     Active Substance: PREDNISONE
     Dosage: UNK, CYCLIC (7 CYCLES)
  7. ETOPOSIDE [Suspect]
     Active Substance: ETOPOSIDE
     Indication: T-cell lymphoma
     Dosage: UNK, CYCLIC (7 CYCLES)
  8. ETOPOSIDE [Suspect]
     Active Substance: ETOPOSIDE
     Dosage: R-CHOEP-14 CHEMOTHERAPY
  9. CYCLOPHOSPHAMIDE [Suspect]
     Active Substance: CYCLOPHOSPHAMIDE
     Indication: T-cell lymphoma
     Dosage: UNK, CYCLIC (7 CYCLES)
  10. CYCLOPHOSPHAMIDE [Suspect]
     Active Substance: CYCLOPHOSPHAMIDE
     Dosage: R-CHOEP-14 CHEMOTHERAPY
  11. CYCLOPHOSPHAMIDE [Suspect]
     Active Substance: CYCLOPHOSPHAMIDE
     Dosage: UNK, (R-CHOEP-14 CHEMOTHERAPY)
  12. RITUXIMAB [Suspect]
     Active Substance: RITUXIMAB
     Indication: T-cell lymphoma
     Dosage: UNK, CYCLIC (7 CYCLES)
  13. RITUXIMAB [Suspect]
     Active Substance: RITUXIMAB
     Dosage: R-CHOEP-14 CHEMOTHERAPY
  14. RITUXIMAB [Suspect]
     Active Substance: RITUXIMAB
     Indication: T-cell lymphoma
     Dosage: UNK, (7 CYCLES R-CHOEP-14 CHEMOTHERAPY)
  15. RITUXIMAB [Suspect]
     Active Substance: RITUXIMAB
     Dosage: UNKC, (UNK, CYCLIC (7 CYCLES))
  16. RITUXIMAB [Suspect]
     Active Substance: RITUXIMAB
     Dosage: UNK, (R-CHOEP-14 CHEMOTHERAPY)
  17. CYCLOPHOSPHAMIDE\DOXORUBICIN\ETOPOSIDE\PREDNISONE\VINCRISTINE [Suspect]
     Active Substance: CYCLOPHOSPHAMIDE\DOXORUBICIN\ETOPOSIDE\PREDNISONE\VINCRISTINE
     Indication: T-cell lymphoma
     Dosage: UNK, (7 CYCLES R-CHOEP-14 CHEMOTHERAPY)
  18. VINCRISTINE [Suspect]
     Active Substance: VINCRISTINE
     Indication: T-cell lymphoma
     Dosage: UNK, CYCLIC (7 CYCLES)
  19. VINCRISTINE [Suspect]
     Active Substance: VINCRISTINE
     Dosage: R-CHOEP-14 CHEMOTHERAPY

REACTIONS (7)
  - Retinal artery occlusion [Unknown]
  - Optic ischaemic neuropathy [Unknown]
  - Disorder of orbit [Unknown]
  - Blindness [Unknown]
  - Toxicity to various agents [Unknown]
  - Retinal haemorrhage [Unknown]
  - Off label use [Unknown]
